FAERS Safety Report 7732298 (Version 2)
Quarter: 2014Q1

REPORT INFORMATION
  Report Type: Spontaneous
  Country: US (occurrence: US)
  Receive Date: 20101222
  Receipt Date: 20140307
  Transmission Date: 20141002
  Serious: No
  Sender: FDA-Public Use
  Company Number: US-AMGEN-KDL428059

PATIENT
  Age: 7 Year
  Sex: Female

DRUGS (1)
  1. ENBREL [Suspect]
     Indication: ARTHRITIS
     Dosage: 0.5 MG, QWK
     Route: 065
     Dates: start: 20090601

REACTIONS (2)
  - Headache [Not Recovered/Not Resolved]
  - Sinus congestion [Recovered/Resolved]
